FAERS Safety Report 4625693-5 (Version None)
Quarter: 2005Q2

REPORT INFORMATION
  Report Type: 
  Country: None (occurrence: None)
  Receive Date: 20050404
  Receipt Date: 20050323
  Transmission Date: 20051028
  Serious: Yes (Other)
  Sender: FDA-Public Use
  Company Number: JP-JNJFOC-20040607184

PATIENT
  Sex: Female
  Weight: 50.8 kg

DRUGS (13)
  1. REMICADE [Suspect]
  2. REMICADE [Suspect]
  3. REMICADE [Suspect]
  4. REMICADE [Suspect]
  5. REMICADE [Suspect]
     Indication: RHEUMATOID ARTHRITIS
  6. RHEUMATREX [Suspect]
     Indication: RHEUMATOID ARTHRITIS
     Route: 049
  7. PREDNISOLONE [Suspect]
     Route: 049
  8. PREDNISOLONE [Suspect]
     Indication: RHEUMATOID ARTHRITIS
     Route: 049
  9. SOLETON [Concomitant]
     Indication: RHEUMATOID ARTHRITIS
  10. FOLIAMIN [Concomitant]
  11. FOSAMAX [Concomitant]
     Indication: OSTEOPOROSIS
     Route: 049
  12. CYTOTEC [Concomitant]
     Indication: GASTRIC DISORDER
     Route: 049
  13. THYRADIN [Concomitant]
     Indication: HYPOTHYROIDISM
     Route: 049

REACTIONS (3)
  - ARTHRITIS INFECTIVE [None]
  - BACTERAEMIA [None]
  - STAPHYLOCOCCAL INFECTION [None]
